FAERS Safety Report 10209747 (Version 2)
Quarter: 2014Q3

REPORT INFORMATION
  Report Type: Spontaneous
  Country: PT (occurrence: PT)
  Receive Date: 20140602
  Receipt Date: 20140704
  Transmission Date: 20150326
  Serious: Yes (Other)
  Sender: FDA-Public Use
  Company Number: PT-009507513-1405PRT015269

PATIENT
  Age: 62 Year
  Sex: Male

DRUGS (4)
  1. REBETOL [Suspect]
     Active Substance: RIBAVIRIN
     Indication: HEPATITIS C
     Dosage: FIRST WEEK: 3 TABS IN THE MORNING+2 TABS IN THE EVENING
     Route: 048
     Dates: start: 20130306, end: 201306
  2. VICTRELIS [Suspect]
     Active Substance: BOCEPREVIR
     Indication: HEPATITIS C
     Dosage: UNK
     Route: 048
     Dates: start: 20130306, end: 20140205
  3. PEGASYS [Suspect]
     Active Substance: PEGINTERFERON ALFA-2A
     Indication: HEPATITIS C
     Dosage: DAILY DOSE: 180 MCG/ML
     Dates: start: 20130306, end: 20140205
  4. REBETOL [Suspect]
     Active Substance: RIBAVIRIN
     Dosage: 14 WEEK: 2 TABS IN THE MORNING+2 TABS IN THE EVENING
     Route: 048
     Dates: start: 201306, end: 20140205

REACTIONS (2)
  - Anaemia [Recovered/Resolved]
  - Neutropenia [Recovered/Resolved]

NARRATIVE: CASE EVENT DATE: 201303
